FAERS Safety Report 10152134 (Version 1)
Quarter: 2014Q2

REPORT INFORMATION
  Report Type: Spontaneous
  Country: US (occurrence: US)
  Receive Date: 20140505
  Receipt Date: 20140505
  Transmission Date: 20141212
  Serious: Yes (Other)
  Sender: FDA-Public Use
  Company Number: US-BAYER-2014-064614

PATIENT
  Age: 42 Year
  Sex: Female
  Weight: 63.49 kg

DRUGS (4)
  1. YAZ [Suspect]
  2. GIANVI [Suspect]
  3. LEVOTHYROXINE [Concomitant]
     Dosage: 75MCG ONCE DAILY
  4. ARIXTRA [Concomitant]

REACTIONS (1)
  - Pulmonary embolism [Recovered/Resolved]
